FAERS Safety Report 5971258-2 (Version None)
Quarter: 2008Q4

REPORT INFORMATION
  Report Type: 
  Country: None (occurrence: None)
  Receive Date: 20081128
  Receipt Date: 20081120
  Transmission Date: 20090506
  Serious: Yes (Hospitalization)
  Sender: FDA-Public Use
  Company Number: JP-PFIZER INC-2008087099

PATIENT
  Sex: Male

DRUGS (3)
  1. UNASYN [Suspect]
     Indication: PNEUMONIA
     Dosage: DAILY DOSE:1.5MG
     Route: 042
     Dates: start: 20081014, end: 20081014
  2. CELESTONE [Concomitant]
  3. POTACOL-R [Concomitant]
     Route: 042

REACTIONS (1)
  - ANAPHYLACTIC SHOCK [None]
